FAERS Safety Report 6077453-9 (Version None)
Quarter: 2009Q1

REPORT INFORMATION
  Report Type: 
  Country: None (occurrence: None)
  Receive Date: 20090213
  Receipt Date: 20081205
  Transmission Date: 20090719
  Serious: No
  Sender: FDA-Public Use
  Company Number: A0755222A

PATIENT
  Age: 49 Year
  Sex: Female
  Weight: 79.1 kg

DRUGS (5)
  1. TREXIMET [Suspect]
     Indication: MIGRAINE WITHOUT AURA
     Dosage: 1TAB UNKNOWN
     Route: 048
     Dates: end: 20081016
  2. BUTALBITAL/APAP/CAFF [Concomitant]
     Indication: MIGRAINE WITHOUT AURA
     Dosage: 2TAB AS REQUIRED
     Route: 048
  3. PROMETHAZINE [Concomitant]
     Indication: MIGRAINE WITHOUT AURA
     Dosage: 25MG AS REQUIRED
     Route: 048
  4. IMITREX [Concomitant]
     Indication: MIGRAINE WITHOUT AURA
     Dosage: 1INJ AS REQUIRED
     Route: 058
  5. RELPAX [Concomitant]
     Indication: MIGRAINE WITHOUT AURA
     Dosage: 40MG AS REQUIRED
     Route: 048

REACTIONS (2)
  - DYSPEPSIA [None]
  - PRODUCT QUALITY ISSUE [None]
